FAERS Safety Report 11785838 (Version 1)
Quarter: 2015Q4

REPORT INFORMATION
  Report Type: Spontaneous
  Country: BR (occurrence: BR)
  Receive Date: 20151130
  Receipt Date: 20151130
  Transmission Date: 20160305
  Serious: Yes (Other)
  Sender: FDA-Public Use
  Company Number: BR-PFIZER INC-2015396138

PATIENT
  Age: 55 Year
  Sex: Female
  Weight: 63 kg

DRUGS (1)
  1. LYRICA [Suspect]
     Active Substance: PREGABALIN
     Indication: PAIN
     Dosage: STRENGHT 150 MG , FREQUENCY 2X/DAY
     Route: 048

REACTIONS (5)
  - Renal disorder [Unknown]
  - Nerve injury [Unknown]
  - Pain [Unknown]
  - Sluggishness [Unknown]
  - Condition aggravated [Unknown]
